FAERS Safety Report 7519688-1 (Version None)
Quarter: 2011Q2

REPORT INFORMATION
  Report Type: 
  Country: None (occurrence: None)
  Receive Date: 20110602
  Receipt Date: 20110524
  Transmission Date: 20111010
  Serious: Yes (Other)
  Sender: FDA-Public Use
  Company Number: US-PFIZER INC-2011110667

PATIENT
  Sex: Female
  Weight: 49.89 kg

DRUGS (5)
  1. ATENOLOL [Concomitant]
     Indication: HYPERTENSION
     Dosage: 80 MG DAILY
     Route: 048
  2. ATENOLOL [Concomitant]
     Dosage: 50 MG, 1X/DAY
  3. ZOLOFT [Concomitant]
     Indication: DEPRESSION
     Dosage: 100 MG, 1X/DAY
     Route: 048
  4. NEURONTIN [Suspect]
     Indication: SLEEP DISORDER
  5. NEURONTIN [Suspect]
     Indication: NERVOUS SYSTEM DISORDER
     Dosage: 300 MG, 3X/DAY
     Route: 048
     Dates: start: 20110301, end: 20110318

REACTIONS (7)
  - SKIN ULCER [None]
  - MOUTH ULCERATION [None]
  - TONGUE ULCERATION [None]
  - FRACTURE [None]
  - OEDEMA MOUTH [None]
  - LYMPHADENOPATHY [None]
  - BACTERIAL INFECTION [None]
